FAERS Safety Report 9075865 (Version 1)
Quarter: 2013Q1

REPORT INFORMATION
  Report Type: Report from Study
  Country: US (occurrence: US)
  Receive Date: 20130129
  Receipt Date: 20130129
  Transmission Date: 20140127
  Serious: No
  Sender: FDA-Public Use
  Company Number: US-ABBOTT-12P-163-0941515-00

PATIENT
  Age: 50 Year
  Sex: Female

DRUGS (6)
  1. HUMIRA 40 MG/0.8 ML PEN [Suspect]
     Indication: PSORIATIC ARTHROPATHY
     Dates: start: 20120523
  2. METHOTREXATE [Concomitant]
     Indication: PROSTATIC SPECIFIC ANTIGEN
     Dosage: WEEKLY
  3. ACTOS [Concomitant]
     Indication: GLUCOSE TOLERANCE IMPAIRED
  4. METFORMIN [Concomitant]
     Indication: GLUCOSE TOLERANCE IMPAIRED
  5. STEROID INJECTIONS [Concomitant]
     Indication: OEDEMA PERIPHERAL
     Dosage: EVERY 2 MONTHS
     Dates: start: 20120425
  6. PREDNISONE [Concomitant]
     Indication: OEDEMA PERIPHERAL
     Dosage: DAILY
     Route: 048

REACTIONS (3)
  - Incorrect dose administered [Not Recovered/Not Resolved]
  - Wrong technique in drug usage process [Not Recovered/Not Resolved]
  - Injection site reaction [Not Recovered/Not Resolved]
